FAERS Safety Report 4610109-5 (Version None)
Quarter: 2005Q1

REPORT INFORMATION
  Report Type: 
  Country: None (occurrence: None)
  Receive Date: 20050316
  Receipt Date: 20040730
  Transmission Date: 20050727
  Serious: No
  Sender: FDA-Public Use
  Company Number: US-GLAXOSMITHKLINE-A0520392A

PATIENT
  Sex: Female

DRUGS (1)
  1. COMPAZINE [Suspect]
     Indication: VOMITING
     Route: 065
     Dates: start: 19890101, end: 19890101

REACTIONS (1)
  - NIGHTMARE [None]
